FAERS Safety Report 7523515-6 (Version None)
Quarter: 2011Q2

REPORT INFORMATION
  Report Type: 
  Country: None (occurrence: None)
  Receive Date: 20110603
  Receipt Date: 20110525
  Transmission Date: 20111010
  Serious: Yes (Other)
  Sender: FDA-Public Use
  Company Number: CHPA2011NO07480

PATIENT
  Age: 26 Year
  Sex: Female

DRUGS (2)
  1. OTRIVIN [Suspect]
     Indication: NASOPHARYNGITIS
     Dosage: UNK, UNK
     Route: 045
  2. OTRIVIN [Suspect]
     Indication: NASAL CONGESTION

REACTIONS (8)
  - INCORRECT DRUG ADMINISTRATION DURATION [None]
  - ANXIETY [None]
  - SLEEP DISORDER [None]
  - NASAL OBSTRUCTION [None]
  - DRUG DEPENDENCE [None]
  - DYSPNOEA [None]
  - PANIC DISORDER [None]
  - NASAL DISORDER [None]
